FAERS Safety Report 24660300 (Version 1)
Quarter: 2024Q4

REPORT INFORMATION
  Report Type: Spontaneous
  Country: US (occurrence: US)
  Receive Date: 20241125
  Receipt Date: 20241125
  Transmission Date: 20250115
  Serious: Yes (Death, Other)
  Sender: ALEMBIC
  Company Number: US-ALEMBIC PHARMACUETICALS LIMITED-2024SCAL001656

PATIENT

DRUGS (1)
  1. PREGABALIN [Suspect]
     Active Substance: PREGABALIN
     Indication: Product used for unknown indication
     Dosage: UNK
     Route: 065

REACTIONS (7)
  - Arrhythmia [Fatal]
  - Agitation [Fatal]
  - Tremor [Fatal]
  - Hyperreflexia [Fatal]
  - Clonus [Fatal]
  - Tachycardia [Fatal]
  - Toxicity to various agents [Fatal]
